FAERS Safety Report 10652787 (Version 3)
Quarter: 2015Q1

REPORT INFORMATION
  Report Type: Report from Study
  Country: US (occurrence: US)
  Receive Date: 20141215
  Receipt Date: 20150216
  Transmission Date: 20150720
  Serious: Yes (Life-Threatening, Other)
  Sender: FDA-Public Use
  Company Number: US-ABBVIE-14P-163-1320585-00

PATIENT
  Sex: Female

DRUGS (2)
  1. HUMIRA [Suspect]
     Active Substance: ADALIMUMAB
     Indication: MATERNAL EXPOSURE TIMING UNSPECIFIED
     Route: 064
  2. SYNAGIS [Concomitant]
     Active Substance: PALIVIZUMAB
     Indication: ANTIVIRAL PROPHYLAXIS
     Route: 065

REACTIONS (7)
  - Foetal exposure during pregnancy [Unknown]
  - Umbilical cord vascular disorder [Unknown]
  - Placental insufficiency [Not Recovered/Not Resolved]
  - Congenital anomaly [Unknown]
  - Foetal growth restriction [Unknown]
  - Umbilical cord vascular disorder [Not Recovered/Not Resolved]
  - Premature baby [Unknown]

NARRATIVE: CASE EVENT DATE: 20140727
